FAERS Safety Report 5532498-X (Version None)
Quarter: 2007Q4

REPORT INFORMATION
  Report Type: 
  Country: None (occurrence: None)
  Receive Date: 20071203
  Receipt Date: 20071121
  Transmission Date: 20080405
  Serious: Yes (Hospitalization)
  Sender: FDA-Public Use
  Company Number: AU-PFIZER INC-2007098853

PATIENT
  Sex: Male

DRUGS (7)
  1. LYRICA [Suspect]
     Indication: BURNING SENSATION
  2. DILATREND [Concomitant]
  3. PREDNISONE TAB [Concomitant]
  4. IMDUR [Concomitant]
  5. RABEPRAZOLE SODIUM [Concomitant]
  6. WARFARIN SODIUM [Concomitant]
  7. LANTUS [Concomitant]

REACTIONS (4)
  - BLOOD POTASSIUM INCREASED [None]
  - HEART RATE DECREASED [None]
  - MUSCULAR WEAKNESS [None]
  - RENAL FAILURE [None]
